FAERS Safety Report 15655970 (Version 1)
Quarter: 2018Q4

REPORT INFORMATION
  Report Type: Spontaneous
  Country: US (occurrence: US)
  Receive Date: 20181115
  Receipt Date: 20181115
  Transmission Date: 20190205
  Serious: Yes (Hospitalization)
  Sender: FDA-Public Use
  Company Number: None

PATIENT
  Sex: Male

DRUGS (14)
  1. PEG-3350/KCL SOL/SODIUM [Concomitant]
  2. TACROLIMUS CAP 0.5MG [Concomitant]
     Active Substance: TACROLIMUS
  3. AMLODIPINE TAB 5MG [Concomitant]
  4. ATOVAQUONE. [Suspect]
     Active Substance: ATOVAQUONE
     Indication: PRODUCT USED FOR UNKNOWN INDICATION
     Route: 048
  5. PULMOZYME [Suspect]
     Active Substance: DORNASE ALFA
     Indication: PRODUCT USED FOR UNKNOWN INDICATION
     Route: 055
  6. ALENDRONATE TAB 70MG [Concomitant]
  7. ACETYLCYST SOL 10% [Concomitant]
  8. SIROLIMUS TAB 0.5MG [Concomitant]
     Active Substance: SIROLIMUS
  9. AZITHROMYCIN TAB 250MG [Concomitant]
  10. CLONIDINE TAB 0.1MG [Concomitant]
  11. DILTIAZEM CAP 180MG ER [Concomitant]
  12. DOK CAP 100MG [Concomitant]
  13. ALPRAZOLAM TAB 1MG [Concomitant]
  14. METOPROLOL TAR TAB 25MG [Concomitant]

REACTIONS (2)
  - Therapy cessation [None]
  - Lung transplant [None]
